FAERS Safety Report 19588970 (Version 2)
Quarter: 2021Q3

REPORT INFORMATION
  Report Type: Spontaneous
  Country: HR (occurrence: HR)
  Receive Date: 20210721
  Receipt Date: 20210722
  Transmission Date: 20211014
  Serious: Yes (Hospitalization, Other)
  Sender: FDA-Public Use
  Company Number: HR-009507513-2107HRV006106

PATIENT
  Age: 52 Year
  Sex: Male
  Weight: 95 kg

DRUGS (1)
  1. JANUVIA [Suspect]
     Active Substance: SITAGLIPTIN PHOSPHATE
     Dosage: 1 X 100 MILLIGRAM
     Route: 048
     Dates: start: 20201018

REACTIONS (6)
  - Iron deficiency anaemia [Unknown]
  - Colon cancer [Unknown]
  - Blood glucose abnormal [Recovering/Resolving]
  - Glycosylated haemoglobin abnormal [Unknown]
  - Weight decreased [Unknown]
  - Interstitial lung disease [Unknown]

NARRATIVE: CASE EVENT DATE: 2020
